FAERS Safety Report 22257761 (Version 7)
Quarter: 2024Q2

REPORT INFORMATION
  Report Type: Report from Study
  Country: US (occurrence: US)
  Receive Date: 20230427
  Receipt Date: 20240506
  Transmission Date: 20240716
  Serious: Yes (Hospitalization, Other)
  Sender: FDA-Public Use
  Company Number: US-ABBVIE-4698408

PATIENT
  Age: 52 Year
  Sex: Male

DRUGS (2)
  1. IMBRUVICA [Suspect]
     Active Substance: IBRUTINIB
     Indication: Chronic lymphocytic leukaemia
     Dosage: END DATE 2022
     Route: 048
     Dates: start: 20220901
  2. IMBRUVICA [Suspect]
     Active Substance: IBRUTINIB
     Indication: Chronic lymphocytic leukaemia
     Route: 048
     Dates: start: 20221001

REACTIONS (11)
  - Sepsis [Recovering/Resolving]
  - Infection [Recovered/Resolved]
  - Anaemia [Unknown]
  - Blood pressure increased [Unknown]
  - Renal injury [Unknown]
  - Bacterial gingivitis [Unknown]
  - Weight fluctuation [Unknown]
  - Tongue cyst [Recovering/Resolving]
  - Diarrhoea [Recovered/Resolved]
  - Illness [Recovered/Resolved]
  - Vomiting [Recovered/Resolved]

NARRATIVE: CASE EVENT DATE: 20230201
